FAERS Safety Report 19804832 (Version 1)
Quarter: 2021Q3

REPORT INFORMATION
  Report Type: Spontaneous
  Country: FR (occurrence: FR)
  Receive Date: 20210908
  Receipt Date: 20210908
  Transmission Date: 20211014
  Serious: Yes (Other)
  Sender: FDA-Public Use
  Company Number: FR-PFIZER INC-2021771830

PATIENT
  Age: 45 Year
  Sex: Female

DRUGS (5)
  1. VALSARTAN. [Concomitant]
     Active Substance: VALSARTAN
     Indication: HYPERTENSION
     Dosage: UNK
     Dates: start: 202011
  2. BOSUTINIB [Suspect]
     Active Substance: BOSUTINIB
     Dosage: 200 MG
  3. AMLODIPINE [Concomitant]
     Active Substance: AMLODIPINE BESYLATE
     Indication: HYPERTENSION
     Dosage: UNK
     Dates: start: 202011
  4. CRESTOR [Concomitant]
     Active Substance: ROSUVASTATIN CALCIUM
  5. BOSUTINIB [Suspect]
     Active Substance: BOSUTINIB
     Indication: CHRONIC MYELOID LEUKAEMIA
     Dosage: 400 MG
     Dates: start: 201812

REACTIONS (4)
  - Pulmonary arterial hypertension [Unknown]
  - Malaise [Unknown]
  - Dyspnoea exertional [Unknown]
  - Syncope [Unknown]

NARRATIVE: CASE EVENT DATE: 202105
